FAERS Safety Report 22784354 (Version 3)
Quarter: 2023Q4

REPORT INFORMATION
  Report Type: Report from Study
  Country: DE (occurrence: DE)
  Receive Date: 20230803
  Receipt Date: 20231102
  Transmission Date: 20240109
  Serious: Yes (Hospitalization)
  Sender: FDA-Public Use
  Company Number: DE-JNJFOC-20230702240

PATIENT
  Age: 58 Year
  Sex: Female
  Weight: 63.8 kg

DRUGS (30)
  1. AMIVANTAMAB [Suspect]
     Active Substance: AMIVANTAMAB
     Indication: Non-small cell lung cancer metastatic
     Route: 042
     Dates: start: 20230626, end: 20230627
  2. CARBOPLATIN [Suspect]
     Active Substance: CARBOPLATIN
     Indication: Non-small cell lung cancer metastatic
     Route: 042
     Dates: start: 20230626, end: 20230626
  3. PEMETREXED [Suspect]
     Active Substance: PEMETREXED
     Indication: Non-small cell lung cancer metastatic
     Route: 042
     Dates: start: 20230626, end: 20230626
  4. CALCET [CALCIUM ACETATE] [Concomitant]
     Indication: Osteoporosis
     Route: 048
  5. CHOLECALCIFEROL [Concomitant]
     Active Substance: CHOLECALCIFEROL
     Indication: Osteoporosis
     Route: 048
  6. NOVALGIN (METAMIZOLE SODIUM) [Concomitant]
     Active Substance: METAMIZOLE SODIUM
     Indication: Cancer pain
     Route: 048
  7. DIMETHINDENE MALEATE [Concomitant]
     Active Substance: DIMETHINDENE MALEATE
     Indication: Nausea
     Route: 042
     Dates: start: 20230626, end: 20230626
  8. DIMETHINDENE MALEATE [Concomitant]
     Active Substance: DIMETHINDENE MALEATE
     Indication: Loss of consciousness
  9. DIMETHINDENE MALEATE [Concomitant]
     Active Substance: DIMETHINDENE MALEATE
     Indication: Hypertension
  10. DIMETHINDENE MALEATE [Concomitant]
     Active Substance: DIMETHINDENE MALEATE
     Indication: Vomiting
  11. DIMETHINDENE MALEATE [Concomitant]
     Active Substance: DIMETHINDENE MALEATE
     Indication: Infusion related reaction
  12. JONOSTERIL [CALCIUM ACETATE;MAGNESIUM ACETATE TETRAHYDRATE;POTASSIUM A [Concomitant]
     Indication: Nausea
     Route: 042
     Dates: start: 20230626, end: 20230626
  13. JONOSTERIL [CALCIUM ACETATE;MAGNESIUM ACETATE TETRAHYDRATE;POTASSIUM A [Concomitant]
     Indication: Bradycardia
     Route: 042
     Dates: start: 20230626, end: 20230626
  14. JONOSTERIL [CALCIUM ACETATE;MAGNESIUM ACETATE TETRAHYDRATE;POTASSIUM A [Concomitant]
     Indication: Vertigo
  15. JONOSTERIL [CALCIUM ACETATE;MAGNESIUM ACETATE TETRAHYDRATE;POTASSIUM A [Concomitant]
     Indication: Loss of consciousness
  16. JONOSTERIL [CALCIUM ACETATE;MAGNESIUM ACETATE TETRAHYDRATE;POTASSIUM A [Concomitant]
     Indication: Vomiting
  17. JONOSTERIL [CALCIUM ACETATE;MAGNESIUM ACETATE TETRAHYDRATE;POTASSIUM A [Concomitant]
     Indication: Hypertension
  18. ONDANSETRON [Concomitant]
     Active Substance: ONDANSETRON
     Indication: Nausea
     Route: 060
     Dates: start: 20230626, end: 20230626
  19. ONDANSETRON [Concomitant]
     Active Substance: ONDANSETRON
     Indication: Vomiting
  20. ONDANSETRON [Concomitant]
     Active Substance: ONDANSETRON
     Indication: Hypertension
  21. ONDANSETRON [Concomitant]
     Active Substance: ONDANSETRON
     Indication: Loss of consciousness
  22. ONDANSETRON [Concomitant]
     Active Substance: ONDANSETRON
     Indication: Infusion related reaction
  23. OXYGEN [Concomitant]
     Active Substance: OXYGEN
     Indication: Nausea
     Route: 045
     Dates: start: 20230626, end: 20230626
  24. OXYGEN [Concomitant]
     Active Substance: OXYGEN
     Indication: Vertigo
  25. OXYGEN [Concomitant]
     Active Substance: OXYGEN
     Indication: Bradycardia
  26. OXYGEN [Concomitant]
     Active Substance: OXYGEN
     Indication: Infusion related reaction
  27. PREDNISOLONE SODIUM SUCCINATE [Concomitant]
     Active Substance: PREDNISOLONE SODIUM SUCCINATE
     Indication: Nausea
     Route: 042
     Dates: start: 20230626, end: 20230626
  28. PREDNISOLONE SODIUM SUCCINATE [Concomitant]
     Active Substance: PREDNISOLONE SODIUM SUCCINATE
     Indication: Loss of consciousness
  29. PREDNISOLONE SODIUM SUCCINATE [Concomitant]
     Active Substance: PREDNISOLONE SODIUM SUCCINATE
     Indication: Vomiting
  30. PREDNISOLONE SODIUM SUCCINATE [Concomitant]
     Active Substance: PREDNISOLONE SODIUM SUCCINATE
     Indication: Infusion related reaction

REACTIONS (1)
  - Acute kidney injury [Recovered/Resolved]

NARRATIVE: CASE EVENT DATE: 20230630
